FAERS Safety Report 21504951 (Version 1)
Quarter: 2022Q4

REPORT INFORMATION
  Report Type: Report from Study
  Country: US (occurrence: US)
  Receive Date: 20221025
  Receipt Date: 20221025
  Transmission Date: 20230113
  Serious: Yes (Hospitalization)
  Sender: FDA-Public Use
  Company Number: US-BRISTOL-MYERS SQUIBB COMPANY-2022-126189

PATIENT
  Age: 54 Year
  Sex: Female
  Weight: 98 kg

DRUGS (2)
  1. NIVOLUMAB [Suspect]
     Active Substance: NIVOLUMAB
     Indication: Ovarian epithelial cancer
     Dosage: ON 16-MAR-2022, THE SUBJECT RECEIVED HER MOST RECENT TRIPLET IV INFUSION
     Route: 042
     Dates: start: 20220216
  2. COM-701 [Suspect]
     Active Substance: COM-701
     Indication: Ovarian epithelial cancer
     Dosage: ON 16-MAR-2022, THE SUBJECT RECEIVED HER MOST RECENT TRIPLET IV INFUSION
     Route: 042
     Dates: start: 20220216

REACTIONS (1)
  - Hypercalcaemia [Recovered/Resolved]

NARRATIVE: CASE EVENT DATE: 20220316
